FAERS Safety Report 7357742-8 (Version None)
Quarter: 2011Q1

REPORT INFORMATION
  Report Type: 
  Country: None (occurrence: None)
  Receive Date: 20110314
  Receipt Date: 20110314
  Transmission Date: 20110831
  Serious: Yes (Hospitalization)
  Sender: FDA-Public Use
  Company Number: None

PATIENT
  Age: 56 Year
  Sex: Female
  Weight: 90.7874 kg

DRUGS (12)
  1. TAXOL [Suspect]
     Indication: BREAST CANCER
     Dosage: 52MG Q WEEJ X 12 IV
     Route: 042
     Dates: start: 20101210, end: 20110224
  2. ONDANSETRON HCL (ZOFRAN) [Concomitant]
  3. LIDOCAINE-PRILOCAINE [Concomitant]
  4. TRANSDERM SCOP [Concomitant]
  5. XANAX [Concomitant]
  6. RAD001 [Concomitant]
  7. ZOLOFT [Concomitant]
  8. LISINOPRIL [Concomitant]
  9. OMEPRAZOLE DELAYED RELEASE (PRILOSEC) [Concomitant]
  10. FLONASE [Concomitant]
  11. CISPLATIN [Suspect]
     Indication: BREAST CANCER
     Dosage: 166MG Q WEEK X 12 IV
     Route: 042
     Dates: start: 20101220, end: 20110224
  12. PROCHLORPERAZINE MALEATE [Concomitant]

REACTIONS (6)
  - MALAISE [None]
  - WEIGHT DECREASED [None]
  - NAUSEA [None]
  - PHARYNGITIS STREPTOCOCCAL [None]
  - FATIGUE [None]
  - VOMITING [None]
